FAERS Safety Report 8312114-4 (Version None)
Quarter: 2012Q2

REPORT INFORMATION
  Report Type: 
  Country: None (occurrence: None)
  Receive Date: 20120425
  Receipt Date: 20110808
  Transmission Date: 20120825
  Serious: Yes (Other)
  Sender: FDA-Public Use
  Company Number: US-TEVA-US015270

PATIENT
  Sex: Female
  Weight: 79 kg

DRUGS (3)
  1. PROVIGIL [Suspect]
     Indication: NARCOLEPSY
     Dosage: 400 MILLIGRAM;
     Route: 048
     Dates: start: 20040426
  2. ADVAIR DISKUS 100/50 [Concomitant]
     Indication: ASTHMA
     Route: 065
  3. ALBUTEROL [Concomitant]
     Indication: ASTHMA
     Route: 049

REACTIONS (2)
  - DYSPNOEA [None]
  - MATERNAL EXPOSURE DURING PREGNANCY [None]
